FAERS Safety Report 17183725 (Version 2)
Quarter: 2020Q2

REPORT INFORMATION
  Report Type: Spontaneous
  Country: CA (occurrence: CA)
  Receive Date: 20191220
  Receipt Date: 20200601
  Transmission Date: 20200713
  Serious: Yes (Other)
  Sender: FDA-Public Use
  Company Number: CA-PFIZER INC-2019543728

PATIENT
  Sex: Female

DRUGS (3)
  1. PLAQUENIL [Suspect]
     Active Substance: HYDROXYCHLOROQUINE SULFATE
     Dosage: UNK
     Dates: end: 201802
  2. METHOTREXATE SODIUM. [Suspect]
     Active Substance: METHOTREXATE SODIUM
     Dosage: UNK
     Route: 065
     Dates: start: 2010, end: 201802
  3. CORTISONE [Concomitant]
     Active Substance: CORTISONE
     Dosage: UNK, AS NEEDED
     Route: 030

REACTIONS (9)
  - White blood cell disorder [Unknown]
  - Lymphoma [Unknown]
  - Drug ineffective [Unknown]
  - Diabetes mellitus [Unknown]
  - Flank pain [Unknown]
  - Anaemia [Unknown]
  - White blood cell count increased [Unknown]
  - Splenomegaly [Unknown]
  - Neutrophil count increased [Unknown]
